FAERS Safety Report 9275140 (Version 1)
Quarter: 2013Q2

REPORT INFORMATION
  Report Type: Spontaneous
  Country: FR (occurrence: FR)
  Receive Date: 20130507
  Receipt Date: 20130507
  Transmission Date: 20140414
  Serious: Yes (Hospitalization, Other)
  Sender: FDA-Public Use
  Company Number: FR-009507513-1305FRA000755

PATIENT
  Age: 45 Year
  Sex: Male
  Weight: 80 kg

DRUGS (12)
  1. VICTRELIS [Suspect]
     Indication: HEPATITIS C
     Dosage: 800 MG, TID
     Dates: start: 20110429
  2. VIRAFERONPEG [Suspect]
     Indication: HEPATITIS C
     Dosage: 120 MICROGRAM, QW
     Dates: start: 20110331, end: 20111220
  3. REBETOL [Suspect]
     Dosage: 600 MG, BID
     Dates: start: 20110331, end: 20121213
  4. SERESTA [Concomitant]
     Indication: ANXIETY
     Dosage: 50 MG, QD
  5. ATHYMIL [Concomitant]
     Indication: DEPRESSION
     Dosage: 90 MG, QD
  6. ATARAX (ALPRAZOLAM) [Concomitant]
     Indication: ANXIETY
     Dosage: 100 MG, QD
  7. ATARAX (ALPRAZOLAM) [Concomitant]
     Indication: PRURITUS
  8. DEROXAT [Concomitant]
     Indication: DEPRESSION
     Dosage: 20 MG, QD
  9. IMOVANE [Concomitant]
     Indication: INSOMNIA
     Dosage: 7.5 MG, QD
  10. INEXIUM [Concomitant]
     Indication: ABDOMINAL PAIN UPPER
     Dosage: 20 MG, QD
  11. METHADONE HYDROCHLORIDE [Concomitant]
     Dosage: 160 MG, QD
  12. EPOETIN [Concomitant]
     Indication: ANAEMIA
     Dosage: 30000 IU, QW
     Dates: start: 20110722, end: 20111213

REACTIONS (2)
  - Eczema [Recovered/Resolved]
  - Dermatitis contact [Recovered/Resolved]
